FAERS Safety Report 15447886 (Version 2)
Quarter: 2019Q1

REPORT INFORMATION
  Report Type: Spontaneous
  Country: US (occurrence: US)
  Receive Date: 20180928
  Receipt Date: 20190115
  Transmission Date: 20190417
  Serious: Yes (Hospitalization, Other)
  Sender: FDA-Public Use
  Company Number: PHHY2018US104061

PATIENT
  Age: 3 Year
  Sex: Male

DRUGS (8)
  1. SIROLIMUS. [Suspect]
     Active Substance: SIROLIMUS
     Indication: IMMUNOSUPPRESSANT DRUG THERAPY
  2. RITUXIMAB. [Concomitant]
     Active Substance: RITUXIMAB
     Indication: PRODUCT USED FOR UNKNOWN INDICATION
     Dosage: UNK
     Route: 065
  3. MYCOPHENOLATE MOFETIL. [Suspect]
     Active Substance: MYCOPHENOLATE MOFETIL
     Indication: HEART TRANSPLANT
     Dosage: UNK
     Route: 065
  4. TACROLIMUS. [Suspect]
     Active Substance: TACROLIMUS
     Indication: IMMUNOSUPPRESSANT DRUG THERAPY
  5. BORTEZOMIB. [Concomitant]
     Active Substance: BORTEZOMIB
     Indication: PRODUCT USED FOR UNKNOWN INDICATION
     Dosage: UNK
     Route: 065
  6. MYCOPHENOLATE MOFETIL. [Suspect]
     Active Substance: MYCOPHENOLATE MOFETIL
     Indication: IMMUNOSUPPRESSANT DRUG THERAPY
  7. TACROLIMUS. [Suspect]
     Active Substance: TACROLIMUS
     Indication: HEART TRANSPLANT REJECTION
     Dosage: UNK
     Route: 065
  8. SIROLIMUS. [Suspect]
     Active Substance: SIROLIMUS
     Indication: HEART TRANSPLANT
     Dosage: UNK
     Route: 065

REACTIONS (11)
  - Heart transplant rejection [Recovered/Resolved]
  - Irritability [Unknown]
  - Chest pain [Unknown]
  - Clostridium difficile infection [Unknown]
  - Diarrhoea [Recovered/Resolved]
  - Pneumatosis intestinalis [Unknown]
  - Bacterial colitis [Unknown]
  - Vomiting [Unknown]
  - Renal impairment [Unknown]
  - Tachypnoea [Unknown]
  - Pseudomembranous colitis [Recovered/Resolved]
